FAERS Safety Report 10167923 (Version 2)
Quarter: 2014Q2

REPORT INFORMATION
  Report Type: Report from Study
  Country: US (occurrence: US)
  Receive Date: 20140512
  Receipt Date: 20140516
  Transmission Date: 20141212
  Serious: Yes (Hospitalization, Other)
  Sender: FDA-Public Use
  Company Number: US-GILEAD-2014-0102070

PATIENT
  Age: 32 Year
  Sex: Female
  Weight: 85.71 kg

DRUGS (4)
  1. EMTRICITABINE/TENOFOVIR DISOPROXIL FUMARATE [Suspect]
     Indication: HIV INFECTION
     Dosage: 500 MG, QD
     Route: 048
     Dates: start: 20100127, end: 20140505
  2. RITONAVIR [Suspect]
     Indication: HIV INFECTION
     Dosage: 100 MG, QD
     Route: 048
     Dates: start: 20100127, end: 20140505
  3. ATAZANAVIR SULFATE [Suspect]
     Indication: HIV INFECTION
     Dosage: 300 MG, QD
     Route: 048
     Dates: start: 20100127, end: 20140505
  4. IRON [Concomitant]
     Indication: ANAEMIA
     Dosage: UNK, TID

REACTIONS (1)
  - Bile duct stone [Recovering/Resolving]
